FAERS Safety Report 8142401-4 (Version None)
Quarter: 2012Q1

REPORT INFORMATION
  Report Type: 
  Country: None (occurrence: None)
  Receive Date: 20120216
  Receipt Date: 20120206
  Transmission Date: 20120608
  Serious: Yes (Other)
  Sender: FDA-Public Use
  Company Number: JP-BRISTOL-MYERS SQUIBB COMPANY-16162505

PATIENT
  Age: 65 Year
  Sex: Male

DRUGS (12)
  1. IPILIMUMAB [Suspect]
     Indication: NON-SMALL CELL LUNG CANCER
     Dosage: NO OF COURSES: 2 STUDY THERAPY DISCONTINUED ON 21SEP2011(LAST DOSE)
     Route: 042
     Dates: start: 20110831, end: 20110921
  2. POSTERISAN FORTE [Concomitant]
     Dates: start: 20110829
  3. IBUDILAST [Concomitant]
     Dates: start: 20100401
  4. TIZANIDINE HCL [Concomitant]
     Dates: start: 20100401
  5. ETHYL LOFLAZEPATE [Concomitant]
     Dates: start: 20100401
  6. CARBOPLATIN [Suspect]
     Indication: NON-SMALL CELL LUNG CANCER
     Dosage: 1DF: 6AUC NO OF COURSES: 5 27OCT2011
     Route: 042
     Dates: start: 20110720, end: 20110921
  7. BROTIZOLAM [Concomitant]
     Dosage: APR2010
     Dates: start: 20040401
  8. SODIUM HYALURONATE [Concomitant]
     Dates: start: 20110805
  9. PACLITAXEL [Suspect]
     Indication: NON-SMALL CELL LUNG CANCER
     Dosage: NO OF COURSES: 5 27OCT2011
     Route: 042
     Dates: start: 20110720, end: 20110921
  10. MAGNESIUM OXIDE [Concomitant]
     Dates: start: 20110914
  11. PITAVASTATIN CALCIUM [Concomitant]
     Dosage: ALSO FROM APR2011
     Dates: start: 20100401
  12. ACETAMINOPHEN [Concomitant]
     Dosage: 14SEP2011-15SEP2011 20SEP2011-ONGOING
     Dates: start: 20110920

REACTIONS (1)
  - HYPOPARATHYROIDISM [None]
